FAERS Safety Report 8936912 (Version 2)
Quarter: 2012Q4

REPORT INFORMATION
  Report Type: 
  Country: US (occurrence: US)
  Receive Date: 20121130
  Receipt Date: 20121206
  Transmission Date: 20130627
  Serious: No
  Sender: FDA-Public Use
  Company Number: US-009507513-1211USA010802

PATIENT
  Age: 68 Year
  Sex: Male
  Weight: 126.98 kg

DRUGS (11)
  1. CLARITIN [Suspect]
     Indication: NASAL CONGESTION
     Dosage: 10 mg, Once
     Route: 048
     Dates: start: 20120921
  2. CLARITIN [Suspect]
     Indication: HEADACHE
     Dosage: 10 mg, qd
     Route: 048
     Dates: start: 20121010, end: 20121011
  3. CLARITIN [Suspect]
     Indication: MEDICAL OBSERVATION
  4. CLARITIN [Suspect]
     Indication: LACRIMATION INCREASED
  5. CLARITIN [Suspect]
     Indication: EYE PAIN
  6. INSULIN [Concomitant]
     Indication: DIABETES MELLITUS
     Dosage: UNK, Unknown
  7. CELEXA [Concomitant]
     Indication: DEPRESSION
     Dosage: UNK, Unknown
  8. ZANTAC [Concomitant]
     Indication: GASTROOESOPHAGEAL REFLUX DISEASE
     Dosage: UNK, Unknown
  9. NEURONTIN [Concomitant]
     Indication: CONVULSION
     Dosage: UNK, Unknown
  10. GABITRIL [Concomitant]
     Indication: CONVULSION
     Dosage: UNK, Unknown
  11. LISINOPRIL [Concomitant]
     Indication: HYPERTENSION
     Dosage: UNK, Unknown

REACTIONS (2)
  - Drug ineffective [Unknown]
  - Drug effect decreased [Unknown]
